FAERS Safety Report 23180028 (Version 3)
Quarter: 2023Q4

REPORT INFORMATION
  Report Type: Report from Study
  Country: AU (occurrence: None)
  Receive Date: 20231114
  Receipt Date: 20231208
  Transmission Date: 20240110
  Serious: Yes (Hospitalization)
  Sender: FDA-Public Use
  Company Number: AU-ROCHE-3436585

PATIENT
  Age: 74 Year
  Sex: Female

DRUGS (3)
  1. OBINUTUZUMAB [Suspect]
     Active Substance: OBINUTUZUMAB
     Indication: Follicular lymphoma
     Dosage: 04/OCT/2023, LAST DOSE WAS GIVEN PRIOR TO SAE, ?FLAT DOSE OF 1000MG IV WILL BE GIVEN EVERY 28 DAY CY
     Route: 042
     Dates: start: 20230628
  2. VENETOCLAX [Suspect]
     Active Substance: VENETOCLAX
     Indication: Follicular lymphoma
     Dosage: 08/OCT/2023, LAST DOSE WAS GIVEN PRIOR TO SAE, 800 MG FOR ONCE DAILY FOR DAYS 1 TO 10 FOR EACH CYCLE
     Route: 065
     Dates: start: 20230628
  3. LENALIDOMIDE [Suspect]
     Active Substance: LENALIDOMIDE
     Indication: Follicular lymphoma
     Dosage: 08/OCT/2023, LAST DOSE WAS GIVEN PRIOR TO SAE, 20MG DAYS 1-21 OF EACH CYCLE
     Route: 065
     Dates: start: 20230802

REACTIONS (1)
  - Rhinovirus infection [Recovered/Resolved]

NARRATIVE: CASE EVENT DATE: 20231007
